FAERS Safety Report 6370642-5 (Version None)
Quarter: 2009Q3

REPORT INFORMATION
  Report Type: 
  Country: None (occurrence: None)
  Receive Date: 20090923
  Receipt Date: 20090909
  Transmission Date: 20100115
  Serious: Yes (Hospitalization)
  Sender: FDA-Public Use
  Company Number: US-MYLANLABS-2009S1015842

PATIENT
  Age: 16 Year
  Sex: Female

DRUGS (6)
  1. METHYLPREDNISOLONE 4MG TAB [Suspect]
     Indication: DERMATOMYOSITIS
  2. METHYLPREDNISOLONE 4MG TAB [Suspect]
     Dosage: 1 G/DAY FOR 3 DAYS
  3. AZATHIOPRINE [Suspect]
     Indication: DERMATOMYOSITIS
     Dosage: 100MG AT BEDTIME
  4. METHOTREXATE [Suspect]
     Indication: DERMATOMYOSITIS
     Route: 058
  5. IMMUNE GLOBULIN NOS [Concomitant]
     Indication: DERMATOMYOSITIS
     Dosage: 2 G/KG/DAY
  6. HYDROXYCHLOROQUINE [Concomitant]
     Indication: DERMATOMYOSITIS

REACTIONS (3)
  - ACINETOBACTER INFECTION [None]
  - PANNICULITIS LOBULAR [None]
  - STAPHYLOCOCCAL INFECTION [None]
